FAERS Safety Report 8534502-3 (Version None)
Quarter: 2012Q3

REPORT INFORMATION
  Report Type: 
  Country: None (occurrence: None)
  Receive Date: 20120724
  Receipt Date: 20120717
  Transmission Date: 20120928
  Serious: Yes (Hospitalization, Other)
  Sender: FDA-Public Use
  Company Number: US-PURDUE-USA-2012-0089998

PATIENT
  Sex: Female

DRUGS (5)
  1. OXYCONTIN [Suspect]
     Dosage: 20 MG IN AM AND 40MG IN PM
     Route: 048
     Dates: start: 20120716
  2. OXYCONTIN [Suspect]
     Dosage: 60 MG, BID
     Route: 048
  3. OXYCONTIN [Suspect]
     Dosage: 40 MG, Q12H
     Route: 048
     Dates: start: 20120715
  4. OXYCONTIN [Suspect]
     Indication: PRODUCT USED FOR UNKNOWN INDICATION
     Dosage: 20 MG, Q12H
     Route: 048
     Dates: start: 20120601
  5. FIORICET [Concomitant]
     Indication: MIGRAINE

REACTIONS (6)
  - OPTIC NERVE INJURY [None]
  - DYSPHONIA [None]
  - DIPLOPIA [None]
  - CRANIOTOMY [None]
  - CRANIAL NERVE OPERATION [None]
  - EAR DISCOMFORT [None]
